FAERS Safety Report 4711104-8 (Version None)
Quarter: 2005Q3

REPORT INFORMATION
  Report Type: 
  Country: None (occurrence: None)
  Receive Date: 20050711
  Receipt Date: 20050701
  Transmission Date: 20060218
  Serious: Yes (Other)
  Sender: FDA-Public Use
  Company Number: 200511765EU

PATIENT
  Age: 46 Year
  Sex: Female

DRUGS (1)
  1. FUROSEMIDE [Suspect]
     Route: 042

REACTIONS (1)
  - ACUTE FEBRILE NEUTROPHILIC DERMATOSIS [None]
